FAERS Safety Report 21269449 (Version 15)
Quarter: 2023Q4

REPORT INFORMATION
  Report Type: Spontaneous
  Country: CA (occurrence: CA)
  Receive Date: 20220830
  Receipt Date: 20231017
  Transmission Date: 20240110
  Serious: Yes (Other)
  Sender: FDA-Public Use
  Company Number: CA-JNJFOC-20220854276

PATIENT
  Age: 41 Year
  Sex: Male

DRUGS (5)
  1. INVEGA TRINZA [Suspect]
     Active Substance: PALIPERIDONE PALMITATE
     Indication: Autism spectrum disorder
     Route: 030
     Dates: start: 20220815
  2. INVEGA TRINZA [Suspect]
     Active Substance: PALIPERIDONE PALMITATE
  3. INVEGA TRINZA [Suspect]
     Active Substance: PALIPERIDONE PALMITATE
  4. WELLBUTRIN XL [Concomitant]
     Active Substance: BUPROPION HYDROCHLORIDE
     Indication: Product used for unknown indication
  5. ZYPREXA [Concomitant]
     Active Substance: OLANZAPINE
     Dosage: 5 MG 2 TAB DAILY PRN
     Route: 048

REACTIONS (16)
  - Hallucination, auditory [Not Recovered/Not Resolved]
  - Aphonia [Not Recovered/Not Resolved]
  - Tobacco user [Unknown]
  - Hypoacusis [Not Recovered/Not Resolved]
  - Drug intolerance [Unknown]
  - Disorientation [Not Recovered/Not Resolved]
  - Language disorder [Not Recovered/Not Resolved]
  - Ejaculation failure [Not Recovered/Not Resolved]
  - Hypersensitivity [Unknown]
  - Tremor [Not Recovered/Not Resolved]
  - Blood prolactin increased [Not Recovered/Not Resolved]
  - Drug ineffective [Unknown]
  - Speech disorder [Not Recovered/Not Resolved]
  - Off label use [Unknown]
  - Libido decreased [Not Recovered/Not Resolved]
  - Back pain [Unknown]

NARRATIVE: CASE EVENT DATE: 20220101
